FAERS Safety Report 10749171 (Version 1)
Quarter: 2015Q1

REPORT INFORMATION
  Report Type: Spontaneous
  Country: US (occurrence: None)
  Receive Date: 20150128
  Receipt Date: 20150128
  Transmission Date: 20150721
  Serious: Yes (Hospitalization)
  Sender: FDA-Public Use
  Company Number: None

PATIENT
  Age: 10 Year
  Sex: Male
  Weight: 40.8 kg

DRUGS (6)
  1. VINCRISTINE SULFATE. [Suspect]
     Active Substance: VINCRISTINE SULFATE
     Dates: end: 20150109
  2. DEXAMETHASONE. [Suspect]
     Active Substance: DEXAMETHASONE
     Dates: end: 20150115
  3. DAUNORUBICIN [Suspect]
     Active Substance: DAUNORUBICIN
     Dates: end: 20150109
  4. ONCASPAR [Suspect]
     Active Substance: PEGASPARGASE
     Dates: end: 20150105
  5. CYTARABINE. [Suspect]
     Active Substance: CYTARABINE
     Dates: end: 20141220
  6. METHOTREXATE [Suspect]
     Active Substance: METHOTREXATE
     Dates: end: 20150116

REACTIONS (15)
  - Vomiting [None]
  - Bilirubin conjugated increased [None]
  - Aspartate aminotransferase increased [None]
  - Hydronephrosis [None]
  - Abdominal pain [None]
  - Nephrolithiasis [None]
  - Nausea [None]
  - Calculus ureteric [None]
  - Anaemia [None]
  - Oedematous kidney [None]
  - Nephrocalcinosis [None]
  - Pancreatic enlargement [None]
  - Fatigue [None]
  - Lethargy [None]
  - Alanine aminotransferase increased [None]

NARRATIVE: CASE EVENT DATE: 20150103
